FAERS Safety Report 11993311 (Version 1)
Quarter: 2016Q1

REPORT INFORMATION
  Report Type: Spontaneous
  Country: US (occurrence: None)
  Receive Date: 20160202
  Receipt Date: 20160202
  Transmission Date: 20160526
  Serious: Yes (Hospitalization)
  Sender: FDA-Public Use
  Company Number: None

PATIENT
  Age: 51 Year
  Sex: Female
  Weight: 54.57 kg

DRUGS (2)
  1. CARBOPLATIN. [Suspect]
     Active Substance: CARBOPLATIN
     Dates: end: 20151203
  2. TAXOL [Suspect]
     Active Substance: PACLITAXEL
     Dates: end: 20151203

REACTIONS (6)
  - Dyspnoea [None]
  - Hypercalcaemia [None]
  - Fatigue [None]
  - Oesophageal squamous cell carcinoma [None]
  - Malignant neoplasm progression [None]
  - Dysphagia [None]

NARRATIVE: CASE EVENT DATE: 20160122
